FAERS Safety Report 17960127 (Version 1)
Quarter: 2020Q2

REPORT INFORMATION
  Report Type: Spontaneous
  Country: DK (occurrence: DK)
  Receive Date: 20200630
  Receipt Date: 20200630
  Transmission Date: 20200714
  Serious: Yes (Other)
  Sender: FDA-Public Use
  Company Number: DK-TEVA-2020-DK-1792723

PATIENT
  Age: 18 Year
  Sex: Male

DRUGS (1)
  1. ARIPIPRAZOLE. [Suspect]
     Active Substance: ARIPIPRAZOLE
     Indication: SCHIZOPHRENIA
     Dosage: DOSAGE: 400MG EVERY 4 WEEKS OR 15 MG / DAY (TABLET)?STRENGTH: 400 MG INJ. TABLET NOT LISTED
     Route: 065
     Dates: start: 201803, end: 201906

REACTIONS (4)
  - Tardive dyskinesia [Recovering/Resolving]
  - Muscle spasms [Recovering/Resolving]
  - Tremor [Recovering/Resolving]
  - Dyskinesia [Recovering/Resolving]

NARRATIVE: CASE EVENT DATE: 2018
